FAERS Safety Report 26141141 (Version 1)
Quarter: 2025Q4

REPORT INFORMATION
  Report Type: Spontaneous
  Country: US (occurrence: US)
  Receive Date: 20251210
  Receipt Date: 20251210
  Transmission Date: 20260118
  Serious: No
  Sender: PFIZER
  Company Number: US-PFIZER INC-202500237363

PATIENT
  Age: 28 Year
  Sex: Female
  Weight: 89.81 kg

DRUGS (1)
  1. CIBINQO [Suspect]
     Active Substance: ABROCITINIB
     Indication: Dermatitis atopic
     Dosage: 100 MG, 1X/DAY ( TABLET PER DOSE, ONCE PER NIGHT, TYPICALLY AROUND 9 TO 10 PM)
     Dates: start: 20251120

REACTIONS (2)
  - Headache [Not Recovered/Not Resolved]
  - Product dose omission in error [Unknown]

NARRATIVE: CASE EVENT DATE: 20251124
